FAERS Safety Report 7955549-1 (Version None)
Quarter: 2011Q4

REPORT INFORMATION
  Report Type: 
  Country: None (occurrence: None)
  Receive Date: 20111202
  Receipt Date: 20111124
  Transmission Date: 20120403
  Serious: Yes (Hospitalization, Other)
  Sender: FDA-Public Use
  Company Number: FI-ROCHE-633204

PATIENT
  Sex: Female

DRUGS (10)
  1. NEORAL [Suspect]
     Indication: BEHCET'S SYNDROME
     Route: 048
     Dates: start: 20080201, end: 20080201
  2. MABTHERA [Suspect]
     Indication: BEHCET'S SYNDROME
     Route: 042
     Dates: start: 20090114, end: 20090218
  3. METHOTREXATE [Suspect]
     Indication: BEHCET'S SYNDROME
     Route: 058
     Dates: start: 20070801, end: 20080601
  4. AZATHIOPRINE [Suspect]
     Indication: BEHCET'S SYNDROME
     Route: 048
     Dates: start: 20080601, end: 20080801
  5. PREDNISOLONE [Suspect]
     Indication: BEHCET'S SYNDROME
     Route: 048
     Dates: start: 20070501
  6. MABTHERA [Suspect]
     Dosage: SECOND CYCLE OF RITUXIMAB
     Dates: start: 20100303, end: 20100324
  7. MYCOPHENOLATE MOFETIL (CELLCEPT) [Suspect]
     Indication: BEHCET'S SYNDROME
     Route: 048
     Dates: start: 20080801, end: 20100901
  8. MYCOPHENOLATE MOFETIL (CELLCEPT) [Suspect]
     Dates: start: 20101201, end: 20110201
  9. DAPSONE [Suspect]
     Indication: PRODUCT USED FOR UNKNOWN INDICATION
  10. CYMEVENE [Concomitant]
     Indication: CYTOMEGALOVIRUS INFECTION

REACTIONS (8)
  - LYMPHOPENIA [None]
  - PROGRESSIVE MULTIFOCAL LEUKOENCEPHALOPATHY [None]
  - CYTOMEGALOVIRUS COLITIS [None]
  - UROSEPSIS [None]
  - HERPES SIMPLEX [None]
  - PNEUMONIA CYTOMEGALOVIRAL [None]
  - PNEUMONIA [None]
  - HEPATIC ENZYME INCREASED [None]
